FAERS Safety Report 25230121 (Version 1)
Quarter: 2025Q2

REPORT INFORMATION
  Report Type: Spontaneous
  Country: JP (occurrence: JP)
  Receive Date: 20250423
  Receipt Date: 20250423
  Transmission Date: 20250716
  Serious: Yes (Other)
  Sender: PFIZER
  Company Number: JP-PFIZER INC-202500082674

PATIENT
  Age: 70 Year
  Sex: Female

DRUGS (1)
  1. LORBRENA [Suspect]
     Active Substance: LORLATINIB
     Indication: Lung neoplasm malignant
     Route: 048

REACTIONS (6)
  - Neuropathy peripheral [Unknown]
  - Aspartate aminotransferase increased [Unknown]
  - Alanine aminotransferase increased [Unknown]
  - Tremor [Unknown]
  - Malaise [Unknown]
  - Anxiety disorder [Unknown]
